FAERS Safety Report 4335937-5 (Version None)
Quarter: 2004Q2

REPORT INFORMATION
  Report Type: 
  Country: None (occurrence: None)
  Receive Date: 20040408
  Receipt Date: 20040326
  Transmission Date: 20050107
  Serious: Yes (Death)
  Sender: FDA-Public Use
  Company Number: 2004S1000902

PATIENT
  Age: 79 Year
  Sex: Male

DRUGS (5)
  1. CLOZAPINE [Suspect]
     Indication: SCHIZOPHRENIA
     Dosage: 37.5 MG, QD, ORAL
     Route: 048
     Dates: end: 20040315
  2. MORPHINE [Concomitant]
  3. LORAZEPAM [Concomitant]
  4. CARBIDOPA AND LEVODOPA [Concomitant]
  5. DOCUSATE [Concomitant]

REACTIONS (1)
  - DEATH [None]
